FAERS Safety Report 16377352 (Version 4)
Quarter: 2022Q1

REPORT INFORMATION
  Report Type: Report from Study
  Country: PL (occurrence: None)
  Receive Date: 20190531
  Receipt Date: 20220228
  Transmission Date: 20220423
  Serious: Yes (Hospitalization)
  Sender: FDA-Public Use
  Company Number: PL-ROCHE-2297447

PATIENT
  Age: 67 Year
  Sex: Male
  Weight: 70 kg

DRUGS (31)
  1. ATEZOLIZUMAB [Suspect]
     Active Substance: ATEZOLIZUMAB
     Indication: Transitional cell carcinoma
     Dosage: ON 12/MAR/2019, HE RECEIVED THE MOST RECENT DOSE (1200 MG) OF ATEZOLIZUMAB PRIOR TO AE (ADVERSE EVEN
     Route: 041
     Dates: start: 20180611
  2. GLYCERIN [Concomitant]
     Active Substance: GLYCERIN
     Indication: Constipation
     Route: 054
  3. LACTULOSE [Concomitant]
     Active Substance: LACTULOSE
     Indication: Constipation
     Route: 048
     Dates: start: 20180702
  4. XENNA [Concomitant]
     Indication: Constipation
  5. FENTANYL [Concomitant]
     Active Substance: FENTANYL
     Indication: Abdominal pain
     Route: 062
     Dates: start: 20180825, end: 20190424
  6. FENTANYL [Concomitant]
     Active Substance: FENTANYL
     Indication: Musculoskeletal pain
     Route: 062
     Dates: start: 20190424, end: 20190627
  7. MORPHINE [Concomitant]
     Active Substance: MORPHINE
     Indication: Musculoskeletal pain
     Route: 048
     Dates: start: 20181004
  8. MEGESTROL ACETATE [Concomitant]
     Active Substance: MEGESTROL ACETATE
     Indication: Decreased appetite
     Dosage: PER RECTUM
     Dates: start: 20181107, end: 20190623
  9. NITRAZEPAM [Concomitant]
     Active Substance: NITRAZEPAM
     Indication: Sleep disorder
     Route: 048
     Dates: start: 20181109
  10. MOZARIN [Concomitant]
     Indication: Depression
     Route: 048
     Dates: start: 20181109
  11. LYRICA [Concomitant]
     Active Substance: PREGABALIN
     Indication: Musculoskeletal pain
     Route: 048
     Dates: start: 20181009, end: 20190424
  12. LYRICA [Concomitant]
     Active Substance: PREGABALIN
     Indication: Polyneuropathy
     Route: 048
     Dates: start: 20190424
  13. RAMIPRIL [Concomitant]
     Active Substance: RAMIPRIL
     Indication: Hypertension
     Route: 048
     Dates: start: 20181204
  14. SPIRONOLACTONE [Concomitant]
     Active Substance: SPIRONOLACTONE
     Indication: Oedema peripheral
     Route: 048
     Dates: start: 20181114
  15. MEDIDERM (POLAND) [Concomitant]
     Indication: Dry skin
     Dosage: 1 GRAIN
     Route: 061
     Dates: start: 20190125
  16. MEDIDERM (POLAND) [Concomitant]
     Indication: Rash
  17. KETONAL (POLAND) [Concomitant]
     Indication: Musculoskeletal pain
     Route: 048
     Dates: start: 20190218, end: 20190225
  18. KETONAL (POLAND) [Concomitant]
     Indication: Radiculopathy
     Route: 042
     Dates: start: 20190402, end: 20190403
  19. OMEPRAZOLE [Concomitant]
     Active Substance: OMEPRAZOLE
     Route: 048
     Dates: start: 20190218, end: 20190225
  20. BETAMETHASONE DIPROPIONATE\GENTAMICIN SULFATE [Concomitant]
     Active Substance: BETAMETHASONE DIPROPIONATE\GENTAMICIN SULFATE
     Indication: Rash pustular
     Dosage: 1 GRAIN
     Route: 061
     Dates: start: 20190220
  21. EUTHYROX [Concomitant]
     Active Substance: LEVOTHYROXINE SODIUM
     Indication: Hypothyroidism
     Route: 048
     Dates: start: 20190221, end: 20190501
  22. EUTHYROX [Concomitant]
     Active Substance: LEVOTHYROXINE SODIUM
     Route: 048
     Dates: start: 20190502
  23. .ALPHA.-LIPOIC ACID [Concomitant]
     Active Substance: .ALPHA.-LIPOIC ACID
     Indication: Lumbosacral radiculopathy
     Route: 048
     Dates: start: 20190304
  24. XYLOCAIN [Concomitant]
     Indication: Radiculopathy
     Route: 042
     Dates: start: 20190402, end: 20190403
  25. CELECOXIB [Concomitant]
     Active Substance: CELECOXIB
     Indication: Radiculopathy
     Route: 048
     Dates: start: 20190404, end: 20190503
  26. KETOPROFEN [Concomitant]
     Active Substance: KETOPROFEN
     Indication: Musculoskeletal pain
     Route: 048
     Dates: start: 20190510
  27. PANTOPRAZOLE [Concomitant]
     Active Substance: PANTOPRAZOLE
     Route: 048
     Dates: start: 20190510
  28. FUROSEMIDE [Concomitant]
     Active Substance: FUROSEMIDE
     Indication: Oedema peripheral
     Route: 048
     Dates: start: 20190529, end: 20190623
  29. DOLTARD [Concomitant]
     Indication: Pain
     Route: 048
     Dates: start: 20190624
  30. CISPLATIN [Concomitant]
     Active Substance: CISPLATIN
     Indication: Neoplasm malignant
     Dates: start: 20200630, end: 20201117
  31. GEMCITABINE [Concomitant]
     Active Substance: GEMCITABINE
     Indication: Neoplasm malignant
     Dates: start: 20200630, end: 20201117

REACTIONS (1)
  - Neuralgia [Recovering/Resolving]

NARRATIVE: CASE EVENT DATE: 20190324
